FAERS Safety Report 4295824-8 (Version None)
Quarter: 2004Q1

REPORT INFORMATION
  Report Type: 
  Country: None (occurrence: None)
  Receive Date: 20040216
  Receipt Date: 20031114
  Transmission Date: 20041129
  Serious: No
  Sender: FDA-Public Use
  Company Number: US-GLAXOSMITHKLINE-A0439810A

PATIENT
  Age: 58 Year
  Sex: Male

DRUGS (7)
  1. LAMICTAL [Suspect]
     Indication: BIPOLAR DISORDER
     Dosage: 150MG PER DAY
     Route: 048
     Dates: start: 20030624, end: 20031021
  2. LIPITOR [Concomitant]
     Dosage: 20U PER DAY
     Route: 048
  3. DRIXORAL [Concomitant]
  4. RESTORIL [Concomitant]
     Route: 048
  5. ASPIRIN [Concomitant]
  6. ULTRAM [Concomitant]
  7. KLOTRIX [Concomitant]

REACTIONS (2)
  - DYSGEUSIA [None]
  - PAROSMIA [None]
